FAERS Safety Report 11495753 (Version 1)
Quarter: 2015Q3

REPORT INFORMATION
  Report Type: Spontaneous
  Country: CA (occurrence: CA)
  Receive Date: 20150911
  Receipt Date: 20150911
  Transmission Date: 20151125
  Serious: Yes (Hospitalization)
  Sender: FDA-Public Use
  Company Number: CA-ROCHE-1627822

PATIENT
  Age: 28 Year
  Sex: Female

DRUGS (5)
  1. HERCEPTIN [Suspect]
     Active Substance: TRASTUZUMAB
     Route: 042
  2. PERJETA [Suspect]
     Active Substance: PERTUZUMAB
     Route: 042
  3. HERCEPTIN [Suspect]
     Active Substance: TRASTUZUMAB
     Indication: PRODUCT USED FOR UNKNOWN INDICATION
     Route: 042
  4. PERJETA [Suspect]
     Active Substance: PERTUZUMAB
     Indication: NEOPLASM MALIGNANT
     Route: 042
  5. TAXOTERE [Suspect]
     Active Substance: DOCETAXEL
     Indication: PRODUCT USED FOR UNKNOWN INDICATION
     Dosage: FREQUENCY: CYCLICAL
     Route: 042

REACTIONS (22)
  - Asthenia [Unknown]
  - Injection site haemorrhage [Unknown]
  - Varicella [Unknown]
  - Dyspnoea [Unknown]
  - Epistaxis [Unknown]
  - Heart rate increased [Unknown]
  - Sinusitis [Unknown]
  - Oedema [Unknown]
  - Paraesthesia [Unknown]
  - Rhinorrhoea [Unknown]
  - Dental caries [Unknown]
  - Feeling of body temperature change [Unknown]
  - Visual acuity reduced [Unknown]
  - Arthropod bite [Unknown]
  - Diarrhoea [Unknown]
  - Pain [Unknown]
  - Erythema [Unknown]
  - Fatigue [Unknown]
  - Headache [Unknown]
  - Influenza [Unknown]
  - Localised infection [Unknown]
  - Peripheral swelling [Unknown]
